FAERS Safety Report 17812379 (Version 1)
Quarter: 2020Q2

REPORT INFORMATION
  Report Type: Spontaneous
  Country: FR (occurrence: FR)
  Receive Date: 20200521
  Receipt Date: 20200521
  Transmission Date: 20200714
  Serious: Yes (Hospitalization)
  Sender: FDA-Public Use
  Company Number: FR-PFIZER INC-2020198928

PATIENT
  Age: 47 Year
  Sex: Male

DRUGS (15)
  1. VINCRISTINE SULFATE. [Suspect]
     Active Substance: VINCRISTINE SULFATE
     Indication: B-CELL LYMPHOMA
     Dosage: UNK
     Route: 065
     Dates: start: 201907, end: 20191101
  2. DOXORUBICIN HCL [Suspect]
     Active Substance: DOXORUBICIN HYDROCHLORIDE
     Dosage: UNK (C1 MAINTENANCE THERAPY)
     Route: 065
     Dates: start: 202001
  3. PREDNISONE. [Suspect]
     Active Substance: PREDNISONE
     Indication: B-CELL LYMPHOMA
     Dosage: UNK
     Route: 065
     Dates: start: 201907, end: 20191101
  4. PREDNISONE. [Suspect]
     Active Substance: PREDNISONE
     Dosage: UNK (C1 MAINTENANCE THERAPY)
     Route: 065
     Dates: start: 202001
  5. CYCLOPHOSPHAMIDE. [Suspect]
     Active Substance: CYCLOPHOSPHAMIDE
     Indication: B-CELL LYMPHOMA
     Dosage: UNK
     Route: 065
     Dates: start: 201907, end: 20191101
  6. GAZYVARO [Suspect]
     Active Substance: OBINUTUZUMAB
     Indication: B-CELL LYMPHOMA
     Dosage: UNK
     Route: 042
     Dates: start: 201907, end: 20191101
  7. VINCRISTINE SULFATE. [Suspect]
     Active Substance: VINCRISTINE SULFATE
     Dosage: UNK (C2 MAINTENANCE THERAPY)
     Route: 065
     Dates: end: 20200313
  8. VINCRISTINE SULFATE. [Suspect]
     Active Substance: VINCRISTINE SULFATE
     Dosage: UNK (C1 MAINTENANCE THERAPY)
     Route: 065
     Dates: start: 202001
  9. GAZYVARO [Suspect]
     Active Substance: OBINUTUZUMAB
     Dosage: UNK (C1 MAINTENANCE THERAPY)
     Route: 065
     Dates: start: 202001
  10. DOXORUBICIN HCL [Suspect]
     Active Substance: DOXORUBICIN HYDROCHLORIDE
     Dosage: UNK (C2 MAINTENANCE THERAPY)
     Route: 065
     Dates: end: 20200313
  11. PREDNISONE. [Suspect]
     Active Substance: PREDNISONE
     Dosage: UNK (C2 MAINTENANCE THERAPY)
     Route: 065
     Dates: end: 20200313
  12. CYCLOPHOSPHAMIDE. [Suspect]
     Active Substance: CYCLOPHOSPHAMIDE
     Dosage: C1 MAINTENANCE THERAPY
     Route: 065
     Dates: start: 202001
  13. DOXORUBICIN HCL [Suspect]
     Active Substance: DOXORUBICIN HYDROCHLORIDE
     Indication: LYMPHOMA
     Dosage: UNK
     Route: 065
     Dates: start: 201907, end: 20191101
  14. CYCLOPHOSPHAMIDE. [Suspect]
     Active Substance: CYCLOPHOSPHAMIDE
     Dosage: UNK ( C2 MAINTENANCE THERAPY)
     Route: 065
     Dates: end: 20200313
  15. GAZYVARO [Suspect]
     Active Substance: OBINUTUZUMAB
     Dosage: UNK (C2 MAINTENANCE THERAPY)
     Route: 065
     Dates: end: 20200313

REACTIONS (1)
  - COVID-19 [Not Recovered/Not Resolved]

NARRATIVE: CASE EVENT DATE: 20200405
